FAERS Safety Report 21010975 (Version 2)
Quarter: 2022Q3

REPORT INFORMATION
  Report Type: Spontaneous
  Country: JP (occurrence: JP)
  Receive Date: 20220627
  Receipt Date: 20220725
  Transmission Date: 20221026
  Serious: Yes (Hospitalization, Other)
  Sender: FDA-Public Use
  Company Number: JP-TEVA-2022-JP-2050648

PATIENT
  Age: 80 Year
  Sex: Male
  Weight: 40 kg

DRUGS (25)
  1. AZILECT [Suspect]
     Active Substance: RASAGILINE MESYLATE
     Indication: Parkinson^s disease
     Dosage: .5 MILLIGRAM DAILY;
     Route: 048
  2. ROPINIROLE HYDROCHLORIDE [Suspect]
     Active Substance: ROPINIROLE HYDROCHLORIDE
     Indication: Parkinson^s disease
     Dosage: 56 MILLIGRAM DAILY;
     Route: 065
     Dates: start: 2021
  3. ENTACAPONE [Suspect]
     Active Substance: ENTACAPONE
     Indication: Parkinson^s disease
     Dosage: 300 MILLIGRAM DAILY;
     Route: 048
     Dates: start: 2020
  4. ENTACAPONE [Suspect]
     Active Substance: ENTACAPONE
     Dosage: 600 MILLIGRAM DAILY;
     Route: 048
  5. LEVODOPA [Suspect]
     Active Substance: LEVODOPA
     Indication: Product used for unknown indication
     Route: 048
     Dates: start: 20070919
  6. LEVODOPA [Suspect]
     Active Substance: LEVODOPA
     Dosage: 500 MILLIGRAM DAILY;
     Route: 048
     Dates: start: 2020
  7. LEVODOPA [Suspect]
     Active Substance: LEVODOPA
     Dosage: 600 MILLIGRAM DAILY;
     Route: 048
     Dates: start: 2020
  8. ROTIGOTINE [Suspect]
     Active Substance: ROTIGOTINE
     Indication: Product used for unknown indication
     Dosage: 4.5 MILLIGRAM DAILY;
     Route: 065
     Dates: start: 2020
  9. ROTIGOTINE [Suspect]
     Active Substance: ROTIGOTINE
     Dosage: 9 MILLIGRAM DAILY;
     Route: 065
     Dates: start: 2020
  10. ROTIGOTINE [Suspect]
     Active Substance: ROTIGOTINE
     Dosage: 13.5 MILLIGRAM DAILY;
     Route: 065
     Dates: start: 2020
  11. ROTIGOTINE [Suspect]
     Active Substance: ROTIGOTINE
     Dosage: 18 MILLIGRAM DAILY;
     Route: 065
     Dates: start: 2020
  12. ROTIGOTINE [Suspect]
     Active Substance: ROTIGOTINE
     Dosage: 22.5 MILLIGRAM DAILY;
     Route: 065
     Dates: start: 2020
  13. ROTIGOTINE [Suspect]
     Active Substance: ROTIGOTINE
     Dosage: 27 MILLIGRAM DAILY;
     Route: 065
     Dates: start: 2020
  14. ROTIGOTINE [Suspect]
     Active Substance: ROTIGOTINE
     Dosage: 31.5 MILLIGRAM DAILY;
     Route: 065
     Dates: start: 2020
  15. ROTIGOTINE [Suspect]
     Active Substance: ROTIGOTINE
     Dosage: 36 MILLIGRAM DAILY;
     Route: 065
     Dates: start: 2021
  16. ZONISAMIDE [Suspect]
     Active Substance: ZONISAMIDE
     Indication: Product used for unknown indication
     Dosage: 50 MILLIGRAM DAILY;
     Route: 065
     Dates: start: 2020
  17. STALEVO [Suspect]
     Active Substance: CARBIDOPA\ENTACAPONE\LEVODOPA
     Indication: Parkinson^s disease
     Dosage: 600 MILLIGRAM DAILY;
     Route: 048
     Dates: start: 20210525
  18. ZONISAMIDE [Suspect]
     Active Substance: ZONISAMIDE
     Indication: Parkinson^s disease
     Dosage: 50 MILLIGRAM DAILY;
     Route: 048
     Dates: start: 20210329
  19. ROPINIROLE HYDROCHLORIDE [Suspect]
     Active Substance: ROPINIROLE HYDROCHLORIDE
     Indication: Parkinson^s disease
     Dosage: 40 MILLIGRAM DAILY;
     Route: 062
     Dates: start: 20210525
  20. ROPINIROLE HYDROCHLORIDE [Suspect]
     Active Substance: ROPINIROLE HYDROCHLORIDE
     Dosage: 16 MILLIGRAM DAILY;
     Route: 062
     Dates: start: 20210525
  21. TRIHEXYPHENIDYL HYDROCHLORIDE [Suspect]
     Active Substance: TRIHEXYPHENIDYL HYDROCHLORIDE
     Indication: Parkinson^s disease
     Dosage: 2 MILLIGRAM DAILY;
     Route: 048
     Dates: start: 20210329, end: 20220306
  22. LYRICA [Suspect]
     Active Substance: PREGABALIN
     Indication: Back pain
     Dosage: 25 MILLIGRAM DAILY;
     Route: 048
     Dates: start: 20201006, end: 20220306
  23. LUNESTA [Suspect]
     Active Substance: ESZOPICLONE
     Indication: Insomnia
     Dosage: 1 MILLIGRAM DAILY;
     Route: 048
     Dates: start: 20210215, end: 20220306
  24. MAGNESIUM OXIDE [Suspect]
     Active Substance: MAGNESIUM OXIDE
     Indication: Constipation
     Dosage: 330 MILLIGRAM DAILY;
     Route: 048
     Dates: start: 20201005
  25. MIYA-BM [Suspect]
     Active Substance: CLOSTRIDIUM BUTYRICUM SPORES STRAIN M-55
     Indication: Constipation
     Dosage: 1 GRAM DAILY;
     Route: 048
     Dates: start: 20201116

REACTIONS (2)
  - Fall [Recovering/Resolving]
  - Spinal fracture [Recovering/Resolving]

NARRATIVE: CASE EVENT DATE: 20211124
